FAERS Safety Report 16485837 (Version 5)
Quarter: 2019Q3

REPORT INFORMATION
  Report Type: Spontaneous
  Country: US (occurrence: US)
  Receive Date: 20190627
  Receipt Date: 20190925
  Transmission Date: 20191004
  Serious: No
  Sender: FDA-Public Use
  Company Number: US-B.I. PHARMACEUTICALS,INC./RIDGEFIELD-2019-US-000160

PATIENT
  Age: 69 Year
  Sex: Female

DRUGS (1)
  1. SPIRIVA RESPIMAT [Suspect]
     Active Substance: TIOTROPIUM BROMIDE
     Indication: CHRONIC OBSTRUCTIVE PULMONARY DISEASE
     Route: 065
     Dates: start: 2016

REACTIONS (3)
  - Chronic obstructive pulmonary disease [Recovering/Resolving]
  - Device issue [Unknown]
  - Dose calculation error [Unknown]

NARRATIVE: CASE EVENT DATE: 201905
